FAERS Safety Report 8206112-9 (Version None)
Quarter: 2012Q1

REPORT INFORMATION
  Report Type: 
  Country: None (occurrence: None)
  Receive Date: 20120313
  Receipt Date: 20120307
  Transmission Date: 20120608
  Serious: Yes (Life-Threatening, Hospitalization, Other)
  Sender: FDA-Public Use
  Company Number: CH-ABBOTT-11P-151-0714023-00

PATIENT
  Age: 62 Year
  Sex: Male
  Weight: 100 kg

DRUGS (11)
  1. NOVALGIN [Suspect]
     Indication: RHEUMATOID ARTHRITIS
     Dates: start: 20110114, end: 20110117
  2. SPIRONOLACTONE [Concomitant]
     Indication: CARDIAC FAILURE CONGESTIVE
     Route: 048
     Dates: end: 20110131
  3. METHOTREXATE [Suspect]
     Dates: start: 20100716, end: 20100922
  4. ENBREL [Suspect]
     Indication: RHEUMATOID ARTHRITIS
     Route: 058
     Dates: start: 20101122, end: 20110121
  5. METHOTREXATE [Suspect]
     Route: 048
     Dates: start: 20100428, end: 20100715
  6. PREDNISONE TAB [Suspect]
     Dates: start: 20101129, end: 20101230
  7. HUMIRA [Suspect]
     Indication: RHEUMATOID ARTHRITIS
     Route: 041
     Dates: start: 20110121, end: 20110121
  8. ARAVA [Suspect]
     Indication: RHEUMATOID ARTHRITIS
     Route: 048
     Dates: start: 20100922, end: 20101122
  9. FUROSEMIDE [Concomitant]
     Indication: CARDIAC FAILURE CONGESTIVE
     Route: 048
     Dates: end: 20110131
  10. PREDNISONE TAB [Suspect]
     Indication: RHEUMATOID ARTHRITIS
     Dates: start: 20101015, end: 20101128
  11. METHOTREXATE [Suspect]
     Indication: RHEUMATOID ARTHRITIS
     Route: 058
     Dates: start: 20100401, end: 20100401

REACTIONS (11)
  - CARDIAC FAILURE [None]
  - ALTERED STATE OF CONSCIOUSNESS [None]
  - HYPERTHERMIA [None]
  - CARDIAC ARREST [None]
  - SYNCOPE [None]
  - VENTRICULAR FIBRILLATION [None]
  - AMYLOIDOSIS [None]
  - PAIN [None]
  - WEIGHT INCREASED [None]
  - VENTRICULAR TACHYCARDIA [None]
  - BUNDLE BRANCH BLOCK LEFT [None]
